FAERS Safety Report 15363767 (Version 2)
Quarter: 2018Q3

REPORT INFORMATION
  Report Type: Spontaneous
  Country: US (occurrence: US)
  Receive Date: 20180908
  Receipt Date: 20180927
  Transmission Date: 20181010
  Serious: No
  Sender: FDA-Public Use
  Company Number: PHEH2018US036451

PATIENT
  Sex: Male
  Weight: 137.4 kg

DRUGS (1)
  1. COSENTYX [Suspect]
     Active Substance: SECUKINUMAB
     Indication: PSORIASIS
     Dosage: 300 MG, QW
     Route: 058
     Dates: start: 20180811, end: 20180818

REACTIONS (2)
  - Rash [Unknown]
  - Rash vesicular [Recovered/Resolved]
